FAERS Safety Report 9466101 (Version 1)
Quarter: 2013Q3

REPORT INFORMATION
  Report Type: Spontaneous
  Country: US (occurrence: None)
  Receive Date: 20130816
  Receipt Date: 20130816
  Transmission Date: 20140515
  Serious: Yes (Hospitalization)
  Sender: FDA-Public Use
  Company Number: None

PATIENT
  Age: 50 Year
  Sex: Female

DRUGS (1)
  1. NAMENDA [Suspect]
     Indication: SMOKING CESSATION THERAPY
     Dosage: 5 MG PO BID
     Route: 048
     Dates: start: 20130426

REACTIONS (2)
  - Cellulitis [None]
  - Hypotension [None]
